FAERS Safety Report 5955949-5 (Version None)
Quarter: 2008Q4

REPORT INFORMATION
  Report Type: 
  Country: None (occurrence: None)
  Receive Date: 20081112
  Receipt Date: 20081027
  Transmission Date: 20090506
  Serious: Yes (Hospitalization)
  Sender: FDA-Public Use
  Company Number: 2008002628

PATIENT
  Age: 59 Year
  Sex: Male
  Weight: 48.9885 kg

DRUGS (11)
  1. ERLOTINIB (ERLOTINIB) (TABLET) (ERLOTINIB) [Suspect]
     Indication: NON-SMALL CELL LUNG CANCER
     Dosage: (50 MG, QD), ORAL
     Route: 048
     Dates: start: 20080905
  2. SORAFENIB [Suspect]
     Indication: NON-SMALL CELL LUNG CANCER
     Dosage: (400 MG, BID), ORAL
     Route: 048
     Dates: start: 20080905, end: 20080925
  3. SORAFENIB [Suspect]
     Indication: NON-SMALL CELL LUNG CANCER
     Dosage: (400 MG, BID), ORAL
     Route: 048
     Dates: start: 20081008
  4. PANTOPRAZOLE SODIUM [Concomitant]
  5. ANESTHETIC MOUTH WASH [Concomitant]
  6. OXYCODONE WITH APAP (PERCOCET-5) [Concomitant]
  7. ENOXAPARIN SODIUM SQ (HEPARIN-FRACTION, SODIUM SALT) [Concomitant]
  8. ZOFRAN IV PM (ONDANSETRON HYDROCHLORIDE) [Concomitant]
  9. LORAZEPAM IV PM (LORAZEPAM) [Concomitant]
  10. POTASSIUM SUPPLEMENT (POTASSIUM) [Concomitant]
  11. SODIUM SUPPLEMENT (SODIUM) [Concomitant]

REACTIONS (13)
  - ANOREXIA [None]
  - ASTHENIA [None]
  - CANDIDIASIS [None]
  - CONFUSIONAL STATE [None]
  - COUGH [None]
  - DEHYDRATION [None]
  - DYSPHAGIA [None]
  - ELECTROLYTE IMBALANCE [None]
  - MENTAL STATUS CHANGES [None]
  - NAUSEA [None]
  - OROPHARYNGEAL PAIN [None]
  - PULMONARY MASS [None]
  - VOMITING [None]
